FAERS Safety Report 14967703 (Version 1)
Quarter: 2018Q2

REPORT INFORMATION
  Report Type: Spontaneous
  Country: US (occurrence: US)
  Receive Date: 20180511
  Receipt Date: 20180511
  Transmission Date: 20180711
  Serious: Yes (Hospitalization)
  Sender: FDA-Public Use
  Company Number: None

PATIENT
  Sex: Male

DRUGS (14)
  1. LOSARTAN. [Concomitant]
     Active Substance: LOSARTAN
  2. KETOCONAZOLE. [Concomitant]
     Active Substance: KETOCONAZOLE
  3. MEMANTINE. [Concomitant]
     Active Substance: MEMANTINE
  4. HYDRALAZINE [Concomitant]
     Active Substance: HYDRALAZINE HYDROCHLORIDE
  5. ROSUVASTATIN. [Concomitant]
     Active Substance: ROSUVASTATIN
  6. DONEPEZIL. [Concomitant]
     Active Substance: DONEPEZIL
  7. DULOXETINE. [Concomitant]
     Active Substance: DULOXETINE
  8. FOLIC ACID. [Concomitant]
     Active Substance: FOLIC ACID
  9. ENBREL [Suspect]
     Active Substance: ETANERCEPT
     Indication: RHEUMATOID ARTHRITIS
     Route: 058
     Dates: start: 20140522
  10. ROSUVASTATIN. [Concomitant]
     Active Substance: ROSUVASTATIN
  11. AMLODIPINE [Concomitant]
     Active Substance: AMLODIPINE BESYLATE
  12. METHOTREXATE. [Concomitant]
     Active Substance: METHOTREXATE
  13. LEVOFLOXACIN. [Concomitant]
     Active Substance: LEVOFLOXACIN
  14. ATENOLOL. [Concomitant]
     Active Substance: ATENOLOL

REACTIONS (1)
  - Drug dose omission [None]
